APPROVED DRUG PRODUCT: GUAIFENESIN
Active Ingredient: GUAIFENESIN
Strength: 1.2GM
Dosage Form/Route: TABLET, EXTENDED RELEASE;ORAL
Application: A078912 | Product #002
Applicant: PERRIGO R AND D CO
Approved: Nov 5, 2020 | RLD: No | RS: No | Type: OTC